FAERS Safety Report 8018279-6 (Version None)
Quarter: 2012Q1

REPORT INFORMATION
  Report Type: 
  Country: None (occurrence: None)
  Receive Date: 20120103
  Receipt Date: 20111227
  Transmission Date: 20120608
  Serious: Yes (Other)
  Sender: FDA-Public Use
  Company Number: ES-SANOFI-AVENTIS-2011SA085174

PATIENT
  Age: 71 Year
  Sex: Male

DRUGS (1)
  1. ALFUZOSIN HCL [Suspect]
     Route: 048
     Dates: start: 20060324

REACTIONS (1)
  - SEXUAL DYSFUNCTION [None]
